FAERS Safety Report 10970366 (Version 2)
Quarter: 2015Q2

REPORT INFORMATION
  Report Type: Spontaneous
  Country: US (occurrence: None)
  Receive Date: 20150327
  Receipt Date: 20150407
  Transmission Date: 20150821
  Serious: Yes (Hospitalization)
  Sender: FDA-Public Use
  Company Number: 20150174

PATIENT
  Age: 31 Year
  Sex: Female

DRUGS (19)
  1. CLONIDINE. [Concomitant]
     Active Substance: CLONIDINE
  2. LIBERTY CYCLER [Suspect]
     Active Substance: DEVICE
     Indication: PERITONEAL DIALYSIS
  3. AMLODIPINE [Concomitant]
     Active Substance: AMLODIPINE BESYLATE
  4. DELFLEX [Suspect]
     Active Substance: CALCIUM CHLORIDE\DEXTROSE MONOHYDRATE\MAGNESIUM CHLORIDE\SODIUM CHLORIDE\SODIUM LACTATE
     Indication: PERITONEAL DIALYSIS
  5. PHOSLO [Concomitant]
     Active Substance: CALCIUM ACETATE
  6. PRO-AIR HFA (ALBUTEROL SULFATE) [Concomitant]
  7. RENVELA (SEVELAMER) [Concomitant]
  8. HYDRALAZINE [Concomitant]
     Active Substance: HYDRALAZINE HYDROCHLORIDE
  9. LIBERTY CYCLER SET [Suspect]
     Active Substance: DEVICE
     Indication: PERITONEAL DIALYSIS
  10. PANTOPRAZOLE [Concomitant]
     Active Substance: PANTOPRAZOLE SODIUM
  11. LACTULOSE. [Concomitant]
     Active Substance: LACTULOSE
  12. VENOFER [Suspect]
     Active Substance: IRON SUCROSE
     Indication: IRON DEFICIENCY ANAEMIA
     Dosage: 100 MG/5 ML, INJECT 10 ML INTRAVENOUS
     Dates: start: 20140202, end: 20150126
  13. NEPHROCAPS (VITAMIN B COMPLEX/VITAMIN C/BIOTIN/FOLIC ACID) [Concomitant]
  14. VENOFER [Suspect]
     Active Substance: IRON SUCROSE
     Indication: CHRONIC KIDNEY DISEASE
     Dosage: 100 MG/5 ML, INJECT 10 ML INTRAVENOUS
     Dates: start: 20140202, end: 20150126
  15. MEN-PHOR (MENTHOL/CAMPHOR) [Concomitant]
  16. LOSARTAN [Concomitant]
     Active Substance: LOSARTAN
  17. CARVEDILOL. [Concomitant]
     Active Substance: CARVEDILOL
  18. ALBUTEROL. [Concomitant]
     Active Substance: ALBUTEROL
  19. GABAPENTIN. [Concomitant]
     Active Substance: GABAPENTIN

REACTIONS (4)
  - Peritonitis [None]
  - Abdominal pain [None]
  - Culture positive [None]
  - Bacterial infection [None]

NARRATIVE: CASE EVENT DATE: 20141221
